FAERS Safety Report 8097126-0 (Version None)
Quarter: 2012Q1

REPORT INFORMATION
  Report Type: 
  Country: None (occurrence: None)
  Receive Date: 20120129
  Receipt Date: 20111118
  Transmission Date: 20120608
  Serious: No
  Sender: FDA-Public Use
  Company Number: US-ABBOTT-11P-163-0876423-00

PATIENT
  Age: 63 Year
  Sex: Female

DRUGS (10)
  1. HUMIRA [Suspect]
     Indication: PSORIASIS
     Dates: start: 20111001
  2. PROZAC [Concomitant]
     Indication: DEPRESSION
  3. CARDIZEM [Concomitant]
     Indication: CHEST PAIN
  4. METHOTREXATE [Concomitant]
     Indication: PSORIASIS
     Dosage: CURRENTLY WEANING OFF
  5. FOLIC ACID [Concomitant]
     Indication: PRODUCT USED FOR UNKNOWN INDICATION
  6. ACTOPLUS MET [Concomitant]
     Indication: DIABETES MELLITUS
     Dosage: 15/500
  7. ZOCOR [Concomitant]
     Indication: BLOOD CHOLESTEROL INCREASED
  8. ADDERALL 5 [Concomitant]
     Indication: ATTENTION DEFICIT/HYPERACTIVITY DISORDER
  9. AREDS VITAMINS [Concomitant]
     Indication: GLAUCOMA
  10. XANAX [Concomitant]
     Indication: ANXIETY
     Dosage: PRN

REACTIONS (2)
  - URINARY TRACT INFECTION [None]
  - BLOOD URINE PRESENT [None]
